FAERS Safety Report 6277276-1 (Version None)
Quarter: 2009Q3

REPORT INFORMATION
  Report Type: 
  Country: None (occurrence: None)
  Receive Date: 20090722
  Receipt Date: 20090313
  Transmission Date: 20100115
  Serious: No
  Sender: FDA-Public Use
  Company Number: US-BRISTOL-MYERS SQUIBB COMPANY-14543862

PATIENT
  Age: 79 Year
  Sex: Female
  Weight: 64 kg

DRUGS (6)
  1. COUMADIN [Suspect]
     Indication: TRANSIENT ISCHAEMIC ATTACK
  2. ACTONEL [Concomitant]
  3. IMDUR [Concomitant]
  4. DITROPAN XL [Concomitant]
  5. LIPITOR [Concomitant]
  6. NEXIUM [Concomitant]

REACTIONS (1)
  - ALOPECIA [None]
